FAERS Safety Report 6287733-X (Version None)
Quarter: 2009Q3

REPORT INFORMATION
  Report Type: 
  Country: None (occurrence: None)
  Receive Date: 20090727
  Receipt Date: 20090727
  Transmission Date: 20100115
  Serious: Yes (Other)
  Sender: FDA-Public Use
  Company Number: None

PATIENT
  Age: 57 Year
  Sex: Male
  Weight: 88.4514 kg

DRUGS (1)
  1. FLUOXETINE [Suspect]
     Indication: ANXIETY
     Dosage: 10 MG ONE DAILY PO
     Route: 048
     Dates: start: 20081115, end: 20090601

REACTIONS (5)
  - BRONCHIAL IRRITATION [None]
  - COUGH [None]
  - DECREASED APPETITE [None]
  - ERECTILE DYSFUNCTION [None]
  - PSORIASIS [None]
